FAERS Safety Report 5567740-2 (Version None)
Quarter: 2007Q4

REPORT INFORMATION
  Report Type: 
  Country: None (occurrence: None)
  Receive Date: 20071205
  Receipt Date: 20071203
  Transmission Date: 20080405
  Serious: Yes (Hospitalization)
  Sender: FDA-Public Use
  Company Number: IG489

PATIENT
  Age: 12 Hour
  Sex: Male
  Weight: 2.6 kg

DRUGS (5)
  1. FLEBOGAMMA 5% DIF [Suspect]
     Indication: JAUNDICE ACHOLURIC
     Dosage: IV
     Route: 042
     Dates: start: 20071113
  2. FLEBOGAMMA 5% DIF [Suspect]
     Indication: RHESUS INCOMPATIBILITY
     Dosage: IV
     Route: 042
     Dates: start: 20071113
  3. PHOTOTHERAPHY [Concomitant]
  4. ANTIBIOTICS [Concomitant]
  5. RED BLOOD CELLS CONCENTRATE TRANSFUSIONS [Concomitant]

REACTIONS (9)
  - ABDOMINAL DISTENSION [None]
  - ABDOMINAL PAIN [None]
  - ABO INCOMPATIBILITY [None]
  - HAEMATOCHEZIA [None]
  - HAEMOLYTIC ANAEMIA [None]
  - JAUNDICE NEONATAL [None]
  - NECROTISING ENTEROCOLITIS NEONATAL [None]
  - PNEUMATOSIS INTESTINALIS [None]
  - VOMITING [None]
